FAERS Safety Report 18409400 (Version 1)
Quarter: 2020Q4

REPORT INFORMATION
  Report Type: Report from Study
  Country: JP (occurrence: JP)
  Receive Date: 20201021
  Receipt Date: 20201021
  Transmission Date: 20210114
  Serious: Yes (Hospitalization)
  Sender: FDA-Public Use
  Company Number: JP-AMGEN-JPNCT2020168842

PATIENT
  Age: 56 Year
  Sex: Female

DRUGS (1)
  1. G-LASTA [Suspect]
     Active Substance: PEGFILGRASTIM
     Indication: COLONY STIMULATING FACTOR THERAPY
     Dosage: UNK
     Route: 058
     Dates: start: 201508, end: 202005

REACTIONS (11)
  - Physical deconditioning [Unknown]
  - Hypoaesthesia [Unknown]
  - Cholangitis [Unknown]
  - Pruritus [Unknown]
  - Malaise [Unknown]
  - Pyrexia [Unknown]
  - Temperature regulation disorder [Unknown]
  - Initial insomnia [Unknown]
  - Dizziness [Unknown]
  - Headache [Unknown]
  - Dysarthria [Unknown]
